FAERS Safety Report 13253828 (Version 4)
Quarter: 2017Q2

REPORT INFORMATION
  Report Type: Spontaneous
  Country: US (occurrence: US)
  Receive Date: 20170220
  Receipt Date: 20170628
  Transmission Date: 20170830
  Serious: No
  Sender: FDA-Public Use
  Company Number: US-TEVA-727165ACC

PATIENT
  Age: 44 Year
  Sex: Female

DRUGS (17)
  1. DULOXETINE. [Concomitant]
     Active Substance: DULOXETINE
  2. FERROUS SULF [Concomitant]
     Active Substance: FERROUS SULFATE
  3. VITAMIN D [Concomitant]
     Active Substance: CHOLECALCIFEROL
  4. BACLOFEN. [Concomitant]
     Active Substance: BACLOFEN
  5. FERROUS SULFATE. [Concomitant]
     Active Substance: FERROUS SULFATE
  6. GABAPENTIN. [Concomitant]
     Active Substance: GABAPENTIN
  7. NITROFURANTOIN. [Concomitant]
     Active Substance: NITROFURANTOIN
  8. DEXAMETHASONE. [Concomitant]
     Active Substance: DEXAMETHASONE
  9. TIZANIDINE. [Concomitant]
     Active Substance: TIZANIDINE
  10. IBU [Concomitant]
     Active Substance: IBUPROFEN
  11. METHYL PREDNISOLONE [Concomitant]
     Active Substance: METHYLPREDNISOLONE
  12. FISH OIL [Concomitant]
     Active Substance: FISH OIL
  13. LORAZEPAM. [Concomitant]
     Active Substance: LORAZEPAM
  14. DIAZEPAM. [Concomitant]
     Active Substance: DIAZEPAM
  15. COPAXONE [Suspect]
     Active Substance: GLATIRAMER ACETATE
     Indication: MULTIPLE SCLEROSIS
     Route: 058
     Dates: start: 20161230
  16. AMPYRA [Concomitant]
     Active Substance: DALFAMPRIDINE
  17. CARBAMAZEPINE. [Concomitant]
     Active Substance: CARBAMAZEPINE

REACTIONS (6)
  - Bladder disorder [Unknown]
  - Memory impairment [Not Recovered/Not Resolved]
  - Limb discomfort [Unknown]
  - Fatigue [Unknown]
  - Drug ineffective [Unknown]
  - Drug dose omission [Unknown]

NARRATIVE: CASE EVENT DATE: 201701
